FAERS Safety Report 25901506 (Version 1)
Quarter: 2025Q4

REPORT INFORMATION
  Report Type: Spontaneous
  Country: US (occurrence: None)
  Receive Date: 20251009
  Receipt Date: 20251009
  Transmission Date: 20260117
  Serious: Yes (Hospitalization)
  Sender: FDA-CTU
  Company Number: None

PATIENT
  Age: 80 Year
  Sex: Female

DRUGS (1)
  1. COSENTYX [Suspect]
     Active Substance: SECUKINUMAB
     Indication: Psoriatic arthropathy
     Dosage: : INJECT 150MG (1 PEN) SUBCUTANEOUSLY  EVERY 4 WEEKS AS DIR[CTED;?

REACTIONS (3)
  - Blood pressure measurement [None]
  - Blood sodium abnormal [None]
  - Aortic valve replacement [None]

NARRATIVE: CASE EVENT DATE: 20250908
